FAERS Safety Report 4471005-X (Version None)
Quarter: 2004Q4

REPORT INFORMATION
  Report Type: 
  Country: None (occurrence: None)
  Receive Date: 20041011
  Receipt Date: 20040922
  Transmission Date: 20050328
  Serious: Yes (Life-Threatening, Hospitalization)
  Sender: FDA-Public Use
  Company Number: DE-ROCHE-381223

PATIENT
  Age: 44 Year
  Sex: Male

DRUGS (45)
  1. DACLIZUMAB [Suspect]
     Route: 042
     Dates: start: 20040526, end: 20040526
  2. DACLIZUMAB [Suspect]
     Route: 042
     Dates: start: 20040602, end: 20040602
  3. MYCOPHENOLATE MOFETIL [Suspect]
     Route: 042
     Dates: start: 20040526, end: 20040531
  4. MYCOPHENOLATE MOFETIL [Suspect]
     Route: 048
     Dates: start: 20040602, end: 20040604
  5. MYCOPHENOLATE MOFETIL [Suspect]
     Route: 048
     Dates: start: 20040605, end: 20040608
  6. MYCOPHENOLATE MOFETIL [Suspect]
     Route: 048
     Dates: start: 20040608, end: 20040624
  7. MYCOPHENOLATE MOFETIL [Suspect]
     Route: 048
     Dates: start: 20040624, end: 20040625
  8. MYCOPHENOLATE MOFETIL [Suspect]
     Route: 048
     Dates: start: 20040625
  9. TACROLIMUS [Suspect]
     Route: 048
     Dates: start: 20040531, end: 20040601
  10. TACROLIMUS [Suspect]
     Route: 048
     Dates: start: 20040601, end: 20040602
  11. TACROLIMUS [Suspect]
     Route: 048
     Dates: start: 20040602, end: 20040603
  12. TACROLIMUS [Suspect]
     Route: 048
     Dates: start: 20040603, end: 20040604
  13. TACROLIMUS [Suspect]
     Route: 048
     Dates: start: 20040604, end: 20040605
  14. TACROLIMUS [Suspect]
     Route: 048
     Dates: start: 20040605, end: 20040608
  15. TACROLIMUS [Suspect]
     Route: 048
     Dates: start: 20040608, end: 20040609
  16. TACROLIMUS [Suspect]
     Route: 048
     Dates: start: 20040609, end: 20040613
  17. TACROLIMUS [Suspect]
     Route: 048
     Dates: start: 20040613, end: 20040616
  18. TACROLIMUS [Suspect]
     Route: 048
     Dates: start: 20040616, end: 20040618
  19. TACROLIMUS [Suspect]
     Route: 048
     Dates: start: 20040618, end: 20040620
  20. TACROLIMUS [Suspect]
     Route: 048
     Dates: start: 20040620, end: 20040621
  21. TACROLIMUS [Suspect]
     Route: 048
     Dates: start: 20040621, end: 20040622
  22. TACROLIMUS [Suspect]
     Route: 048
     Dates: start: 20040622, end: 20040623
  23. TACROLIMUS [Suspect]
     Route: 048
     Dates: start: 20040623, end: 20040624
  24. TACROLIMUS [Suspect]
     Route: 048
     Dates: start: 20040624, end: 20040626
  25. TACROLIMUS [Suspect]
     Route: 048
     Dates: start: 20040626, end: 20040628
  26. TACROLIMUS [Suspect]
     Route: 048
     Dates: start: 20040628, end: 20040630
  27. TACROLIMUS [Suspect]
     Route: 048
     Dates: start: 20040630, end: 20040701
  28. TACROLIMUS [Suspect]
     Route: 048
     Dates: start: 20040701, end: 20040702
  29. TACROLIMUS [Suspect]
     Route: 048
     Dates: start: 20040702, end: 20040703
  30. TACROLIMUS [Suspect]
     Route: 048
     Dates: start: 20040703, end: 20040729
  31. TACROLIMUS [Suspect]
     Route: 048
     Dates: start: 20040729, end: 20040909
  32. TACROLIMUS [Suspect]
     Route: 048
     Dates: start: 20040909
  33. METHYLPREDNISOLONE [Suspect]
     Route: 065
     Dates: start: 20040526, end: 20040531
  34. METHYLPREDNISOLONE [Suspect]
     Route: 065
     Dates: start: 20040531, end: 20040603
  35. PREDNISOLONE [Suspect]
     Route: 065
     Dates: start: 20040603, end: 20040604
  36. PREDNISOLONE [Suspect]
     Route: 065
     Dates: start: 20040604, end: 20040608
  37. PREDNISOLONE [Suspect]
     Route: 065
     Dates: start: 20040608, end: 20040623
  38. PREDNISOLONE [Suspect]
     Route: 065
     Dates: start: 20040623, end: 20040625
  39. PREDNISOLONE [Suspect]
     Route: 065
     Dates: start: 20040625, end: 20040629
  40. ACETYLCYSTEINE [Concomitant]
     Dates: start: 20040526, end: 20040606
  41. NEXIUM [Concomitant]
     Dates: start: 20040526
  42. NOVALGIN [Concomitant]
     Indication: PAIN
     Dates: start: 20040326, end: 20040716
  43. ALDACTONE (POTASSIUM CANRENOATE) [Concomitant]
     Dates: start: 20040526, end: 20040711
  44. LASIX [Concomitant]
     Dates: start: 20040525, end: 20040707
  45. DIFLUCAN [Concomitant]
     Indication: PROPHYLAXIS
     Dates: start: 20040526, end: 20040601

REACTIONS (9)
  - ASCITES INFECTION [None]
  - BACK PAIN [None]
  - BILE DUCT STENOSIS [None]
  - HEPATIC ARTERY STENOSIS [None]
  - INCISIONAL HERNIA [None]
  - POST PROCEDURAL BILE LEAK [None]
  - POST PROCEDURAL COMPLICATION [None]
  - RENAL FAILURE [None]
  - TRANSFUSION REACTION [None]
